FAERS Safety Report 6662762-2 (Version None)
Quarter: 2010Q2

REPORT INFORMATION
  Report Type: 
  Country: None (occurrence: None)
  Receive Date: 20100401
  Receipt Date: 20100324
  Transmission Date: 20101027
  Serious: No
  Sender: FDA-Public Use
  Company Number: US-BIOGENIDEC-2010BI010486

PATIENT
  Age: 46 Year
  Sex: Female

DRUGS (3)
  1. TYSABRI [Suspect]
     Indication: MULTIPLE SCLEROSIS
     Route: 042
     Dates: start: 20050101, end: 20050228
  2. TYSABRI [Suspect]
     Route: 042
     Dates: start: 20071025, end: 20100204
  3. TYSABRI [Suspect]
     Route: 042
     Dates: start: 20100204

REACTIONS (1)
  - MULTIPLE SCLEROSIS [None]
